FAERS Safety Report 10172079 (Version 1)
Quarter: 2014Q2

REPORT INFORMATION
  Report Type: Spontaneous
  Country: US (occurrence: US)
  Receive Date: 20140515
  Receipt Date: 20140515
  Transmission Date: 20141212
  Serious: Yes (Death)
  Sender: FDA-Public Use
  Company Number: CHPA2014US006437

PATIENT
  Age: 99 Year
  Sex: Female

DRUGS (1)
  1. KERI LOTION [Suspect]
     Route: 061

REACTIONS (1)
  - Death [Fatal]
